FAERS Safety Report 5135377-5 (Version None)
Quarter: 2006Q4

REPORT INFORMATION
  Report Type: 
  Country: None (occurrence: None)
  Receive Date: 20061026
  Receipt Date: 20061023
  Transmission Date: 20070319
  Serious: Yes (Hospitalization)
  Sender: FDA-Public Use
  Company Number: AU-BRISTOL-MYERS SQUIBB COMPANY-13553334

PATIENT
  Age: 90 Year
  Sex: Female

DRUGS (1)
  1. KARVEZIDE TABS 300MG/12.5MG [Suspect]
     Route: 048
     Dates: end: 20040511

REACTIONS (3)
  - BRADYCARDIA [None]
  - HYPOKALAEMIA [None]
  - HYPONATRAEMIA [None]
